FAERS Safety Report 9024987 (Version 1)
Quarter: 2013Q1

REPORT INFORMATION
  Report Type: Spontaneous
  Country: TR (occurrence: None)
  Receive Date: 20130104
  Receipt Date: 20130104
  Transmission Date: 20140127
  Serious: Yes (Hospitalization, Other)
  Sender: FDA-Public Use
  Company Number: 2012P1068301

PATIENT
  Age: 28 Year
  Sex: Female

DRUGS (3)
  1. CITALOPRAM [Suspect]
     Indication: DEPRESSION
  2. ETODOLAC [Concomitant]
  3. DESOGESTREL/ETHINYL ESTRADIOL [Concomitant]

REACTIONS (7)
  - Headache [None]
  - Hemiparesis [None]
  - Hypoaesthesia [None]
  - VIIth nerve paralysis [None]
  - Extensor plantar response [None]
  - Cerebral ischaemia [None]
  - Ischaemic stroke [None]
